FAERS Safety Report 25555971 (Version 2)
Quarter: 2025Q3

REPORT INFORMATION
  Report Type: Spontaneous
  Country: AR (occurrence: AR)
  Receive Date: 20250715
  Receipt Date: 20250827
  Transmission Date: 20251021
  Serious: Yes (Hospitalization, Other)
  Sender: SANDOZ
  Company Number: AR-002147023-NVSC2025AR111220

PATIENT
  Sex: Female

DRUGS (4)
  1. FULVESTRANT [Suspect]
     Active Substance: FULVESTRANT
     Dosage: 1 DOSAGE FORM, QMO
     Route: 065
  2. FULVESTRANT [Suspect]
     Active Substance: FULVESTRANT
     Indication: Breast cancer metastatic
     Route: 065
     Dates: start: 20240619
  3. KISQALI [Suspect]
     Active Substance: RIBOCICLIB SUCCINATE
     Indication: Breast cancer metastatic
     Dosage: 600 MG, QD
     Route: 048
     Dates: start: 20240619, end: 202507
  4. ZOLEDRONIC ACID [Suspect]
     Active Substance: ZOLEDRONIC ACID
     Indication: Breast cancer metastatic
     Route: 065
     Dates: start: 20240619

REACTIONS (13)
  - Metastases to pelvis [Not Recovered/Not Resolved]
  - Breast inflammation [Recovered/Resolved]
  - Hypovitaminosis [Recovered/Resolved]
  - Stress [Recovered/Resolved]
  - Pyrexia [Recovered/Resolved]
  - Metastases to spine [Unknown]
  - Retching [Unknown]
  - Decreased immune responsiveness [Recovered/Resolved]
  - White blood cell count decreased [Recovered/Resolved]
  - Red blood cell count decreased [Recovered/Resolved]
  - Vomiting [Unknown]
  - Discomfort [Unknown]
  - Pain [Unknown]
